FAERS Safety Report 6578799-8 (Version None)
Quarter: 2010Q1

REPORT INFORMATION
  Report Type: 
  Country: None (occurrence: None)
  Receive Date: 20100202
  Receipt Date: 20100118
  Transmission Date: 20100710
  Serious: Yes (Hospitalization)
  Sender: FDA-Public Use
  Company Number: 2009003909

PATIENT
  Age: 80 Year
  Sex: Male

DRUGS (3)
  1. ERLOTINIB HYDROCHLORIDE [Suspect]
     Indication: NON-SMALL CELL LUNG CANCER
     Dosage: (150 MG, QD), ORAL
     Route: 048
     Dates: start: 20091119
  2. DOCETAXEL [Suspect]
     Indication: NON-SMALL CELL LUNG CANCER
     Dosage: (135 MG, Q3W), INTRAVENOUS
     Route: 042
     Dates: start: 20091118
  3. VITAMIN B12 [Concomitant]

REACTIONS (8)
  - DEHYDRATION [None]
  - DEVICE RELATED INFECTION [None]
  - FALL [None]
  - HYPOPHAGIA [None]
  - METABOLIC ACIDOSIS [None]
  - NAUSEA [None]
  - NEUTROPENIC INFECTION [None]
  - VOMITING [None]
